FAERS Safety Report 16854842 (Version 1)
Quarter: 2019Q3

REPORT INFORMATION
  Report Type: Spontaneous
  Country: DE (occurrence: DE)
  Receive Date: 20190926
  Receipt Date: 20190926
  Transmission Date: 20191005
  Serious: Yes (Death, Other)
  Sender: FDA-Public Use
  Company Number: DE-TEVA-2019-DE-1111793

PATIENT
  Age: 75 Year
  Sex: Male
  Weight: 95 kg

DRUGS (12)
  1. SPIRONOLACTON 50 MG [Concomitant]
     Active Substance: SPIRONOLACTONE
     Indication: HYPERTENSION
     Dosage: 1-0-0
  2. RAMIPRIL 5MG [Concomitant]
     Active Substance: RAMIPRIL
     Indication: HYPERTENSION
     Dosage: 45 MILLIGRAM DAILY; 2-0-1
  3. CIPROFLOXACIN. [Suspect]
     Active Substance: CIPROFLOXACIN
     Indication: LABORATORY TEST ABNORMAL
     Dosage: 1000 MILLIGRAM DAILY; 1-0-1;
     Dates: start: 20190708
  4. PARACETAMOL [Concomitant]
     Active Substance: ACETAMINOPHEN
  5. METFORMIN [Concomitant]
     Active Substance: METFORMIN HYDROCHLORIDE
     Indication: TYPE 2 DIABETES MELLITUS
     Dosage: 850 MILLIGRAM DAILY; 1/2-0-1/2
  6. FUROSEMID 40MG [Concomitant]
     Indication: HYPERTENSION
     Dosage: 90 MILLIGRAM DAILY; 1-1/2-0
  7. BISOPROLOL 5MG [Concomitant]
     Indication: HYPERTENSION
     Dosage: 5 MILLIGRAM DAILY; 1/2-0-1/2
  8. LEVEMIR [Concomitant]
     Active Substance: INSULIN DETEMIR
     Indication: TYPE 2 DIABETES MELLITUS
  9. ASS 100 [Concomitant]
     Active Substance: ASPIRIN
     Indication: HYPERTENSION
     Dosage: 100 MILLIGRAM DAILY; 0-1-0
  10. NOVALGIN [Concomitant]
  11. HUMALOG [Concomitant]
     Active Substance: INSULIN LISPRO
     Indication: TYPE 2 DIABETES MELLITUS
     Dosage: STILL BZ / KE
  12. INDAPAMID 1.5MG [Concomitant]
     Indication: HYPERTENSION
     Dosage: 1.5 MILLIGRAM DAILY; 1-0-0

REACTIONS (6)
  - Livedo reticularis [Unknown]
  - Loss of consciousness [Unknown]
  - Ventricular fibrillation [Unknown]
  - Pharyngeal swelling [Unknown]
  - Cardiac arrest [Fatal]
  - Shock [Unknown]

NARRATIVE: CASE EVENT DATE: 20190709
